FAERS Safety Report 23114950 (Version 3)
Quarter: 2023Q4

REPORT INFORMATION
  Report Type: Spontaneous
  Country: GB (occurrence: GB)
  Receive Date: 20231027
  Receipt Date: 20231218
  Transmission Date: 20240110
  Serious: Yes (Hospitalization)
  Sender: FDA-Public Use
  Company Number: GB-GALDERMA-GB2023015963

PATIENT

DRUGS (1)
  1. BENZOYL PEROXIDE [Suspect]
     Active Substance: BENZOYL PEROXIDE
     Indication: Acne
     Dosage: 1 DOSAGE FORM
     Route: 061
     Dates: start: 20230725, end: 20230727

REACTIONS (5)
  - Acne cystic [Unknown]
  - Eye irritation [Not Recovered/Not Resolved]
  - Application site erythema [Unknown]
  - Application site pain [Unknown]
  - Application site swelling [Unknown]

NARRATIVE: CASE EVENT DATE: 20230101
